FAERS Safety Report 8067468-3 (Version None)
Quarter: 2012Q1

REPORT INFORMATION
  Report Type: 
  Country: None (occurrence: None)
  Receive Date: 20120124
  Receipt Date: 20111222
  Transmission Date: 20120608
  Serious: Yes (Death, Hospitalization, Other)
  Sender: FDA-Public Use
  Company Number: PHHY2011US112730

PATIENT
  Age: 17 Year
  Sex: Male

DRUGS (2)
  1. TACROLIMUS [Suspect]
     Indication: IMMUNOSUPPRESSION
  2. MYCOPHENOLATE MOFETIL [Suspect]
     Indication: IMMUNOSUPPRESSION

REACTIONS (6)
  - H1N1 INFLUENZA [None]
  - TRANSPLANT REJECTION [None]
  - COUGH [None]
  - PYREXIA [None]
  - BLOOD CREATININE INCREASED [None]
  - CHRONIC MYELOID LEUKAEMIA [None]
